FAERS Safety Report 7308306-3 (Version None)
Quarter: 2011Q1

REPORT INFORMATION
  Report Type: 
  Country: None (occurrence: None)
  Receive Date: 20110223
  Receipt Date: 20110215
  Transmission Date: 20110831
  Serious: Yes (Other)
  Sender: FDA-Public Use
  Company Number: A0913787A

PATIENT
  Age: 73 Year
  Sex: Male

DRUGS (1)
  1. ADVAIR HFA [Suspect]
     Indication: ASTHMA
     Dosage: 1PUFF PER DAY
     Route: 055

REACTIONS (5)
  - DRUG INEFFECTIVE [None]
  - COUGH [None]
  - BRONCHITIS [None]
  - ASTHMA [None]
  - UNDERDOSE [None]
